FAERS Safety Report 5744126-9 (Version None)
Quarter: 2008Q2

REPORT INFORMATION
  Report Type: 
  Country: None (occurrence: None)
  Receive Date: 20080520
  Receipt Date: 20080516
  Transmission Date: 20081010
  Serious: Yes (Other)
  Sender: FDA-Public Use
  Company Number: B0519634A

PATIENT
  Age: 9 Year
  Sex: Female

DRUGS (6)
  1. RELENZA [Suspect]
     Dosage: 5MG FOUR TIMES PER DAY
     Route: 055
     Dates: start: 20080131, end: 20080131
  2. COCARL [Concomitant]
     Route: 048
  3. KIPRES [Concomitant]
     Route: 048
  4. MUCODYNE [Concomitant]
     Route: 048
  5. HOKUNALIN [Concomitant]
     Route: 062
  6. BIOFERMIN [Concomitant]
     Route: 048

REACTIONS (2)
  - ABNORMAL BEHAVIOUR [None]
  - AGITATION [None]
